FAERS Safety Report 25977203 (Version 1)
Quarter: 2025Q4

REPORT INFORMATION
  Report Type: Report from Study
  Country: EU (occurrence: EU)
  Receive Date: 20251030
  Receipt Date: 20251030
  Transmission Date: 20260118
  Serious: Yes (Death, Other)
  Sender: TOLMAR
  Company Number: EU-RECGATEWAY-2025007493

PATIENT
  Sex: Male

DRUGS (10)
  1. ELIGARD [Suspect]
     Active Substance: LEUPROLIDE ACETATE
     Indication: Hormone-refractory prostate cancer
     Dosage: 22.5 MILLIGRAM, Q 3 MONTH
     Dates: start: 20241210
  2. ELIGARD [Suspect]
     Active Substance: LEUPROLIDE ACETATE
     Dosage: 22.5 MILLIGRAM, Q 3 MONTH
     Dates: start: 20250612
  3. ELIGARD [Suspect]
     Active Substance: LEUPROLIDE ACETATE
     Dosage: 22.5 MILLIGRAM, Q 3 MONTH
     Dates: start: 20250911
  4. DEVICE [Suspect]
     Active Substance: DEVICE
     Indication: Hormone-refractory prostate cancer
     Dosage: 22.5 MILLIGRAM, Q 3 MONTH
  5. UNSPECIFIED INGREDIENT [Concomitant]
     Active Substance: UNSPECIFIED INGREDIENT
     Indication: Product used for unknown indication
  6. UNSPECIFIED INGREDIENT [Concomitant]
     Active Substance: UNSPECIFIED INGREDIENT
     Indication: Product used for unknown indication
  7. UNSPECIFIED INGREDIENT [Concomitant]
     Active Substance: UNSPECIFIED INGREDIENT
     Indication: Product used for unknown indication
  8. stomach protectors [Concomitant]
     Indication: Product used for unknown indication
  9. cholesterol-lowering agents [Concomitant]
     Indication: Product used for unknown indication
  10. ADT+AAP [Concomitant]
     Indication: Product used for unknown indication

REACTIONS (1)
  - Death [Fatal]
